FAERS Safety Report 18866460 (Version 1)
Quarter: 2021Q1

REPORT INFORMATION
  Report Type: Spontaneous
  Country: US (occurrence: US)
  Receive Date: 20210209
  Receipt Date: 20210209
  Transmission Date: 20210420
  Serious: Yes (Other)
  Sender: FDA-Public Use
  Company Number: None

PATIENT
  Age: 62 Year
  Sex: Female
  Weight: 89.1 kg

DRUGS (6)
  1. METRONIDAZOLE. [Suspect]
     Active Substance: METRONIDAZOLE
     Indication: HELICOBACTER INFECTION
     Dosage: ?          QUANTITY:42 TABLET(S);?
     Route: 048
     Dates: start: 20210120, end: 20210203
  2. OMEPRAZOLE DR 40 MG [Suspect]
     Active Substance: OMEPRAZOLE
  3. CLARITHROMYCIN 500 MG [Suspect]
     Active Substance: CLARITHROMYCIN
  4. KIRKLAND GUMMY CALCIUM WITH D3 [Concomitant]
  5. VITAFUSION GUMMY WOMEN^S MULTIVITAMIN [Concomitant]
  6. KIRKLAND CHEWABLE C [Concomitant]

REACTIONS (5)
  - Headache [None]
  - Drug interaction [None]
  - Nausea [None]
  - Abnormal dreams [None]
  - Pruritus [None]

NARRATIVE: CASE EVENT DATE: 20210129
